FAERS Safety Report 8004386-0 (Version None)
Quarter: 2011Q4

REPORT INFORMATION
  Report Type: 
  Country: None (occurrence: None)
  Receive Date: 20111223
  Receipt Date: 20111219
  Transmission Date: 20120403
  Serious: No
  Sender: FDA-Public Use
  Company Number: US-BIOGENIDEC-2011BI047814

PATIENT
  Age: 61 Year
  Sex: Female

DRUGS (4)
  1. AVONEX [Suspect]
     Route: 030
     Dates: start: 20111216
  2. AVONEX [Suspect]
     Indication: MULTIPLE SCLEROSIS
     Route: 030
     Dates: start: 20111013, end: 20111103
  3. AVONEX [Suspect]
     Route: 030
     Dates: start: 20111201, end: 20111208
  4. AVONEX [Suspect]
     Route: 030
     Dates: start: 20111110, end: 20111124

REACTIONS (3)
  - ARTHRALGIA [None]
  - TINNITUS [None]
  - FEELING COLD [None]
